FAERS Safety Report 17478193 (Version 2)
Quarter: 2020Q1

REPORT INFORMATION
  Report Type: Spontaneous
  Country: JP (occurrence: JP)
  Receive Date: 20200228
  Receipt Date: 20200316
  Transmission Date: 20200409
  Serious: Yes (Hospitalization)
  Sender: FDA-Public Use
  Company Number: JP-MYLANLABS-2020M1021399

PATIENT
  Age: 79 Year
  Sex: Male
  Weight: 53 kg

DRUGS (15)
  1. ETIZOLAM [Suspect]
     Active Substance: ETIZOLAM
     Indication: PROPHYLAXIS
     Dosage: 0.5 MILLIGRAM, BID
     Route: 048
     Dates: end: 20191203
  2. LOXONIN [Suspect]
     Active Substance: LOXOPROFEN SODIUM
     Indication: HORMONE-REFRACTORY PROSTATE CANCER
     Dosage: 60 MILLIGRAM, PRN
     Route: 048
     Dates: end: 20191203
  3. DENOTAS [Concomitant]
     Active Substance: CALCIUM CARBONATE\CHOLECALCIFEROL\MAGNESIUM CARBONATE
     Indication: PROPHYLAXIS
     Dosage: 2 DOSAGE FORM, QD
     Route: 048
  4. LANSOPRAZOLE. [Suspect]
     Active Substance: LANSOPRAZOLE
     Indication: PROPHYLAXIS
     Dosage: 15 MILLIGRAM, QD
     Route: 048
  5. BISOPROLOL FUMARATE. [Concomitant]
     Active Substance: BISOPROLOL FUMARATE
     Indication: CARDIAC FAILURE CHRONIC
     Dosage: 0.625 MILLIGRAM, BID
     Route: 048
  6. LEUPLIN [Concomitant]
     Active Substance: LEUPROLIDE ACETATE
     Indication: HORMONE-REFRACTORY PROSTATE CANCER
     Dosage: UNK
     Route: 042
     Dates: start: 200410
  7. LIPITOR [Suspect]
     Active Substance: ATORVASTATIN CALCIUM
     Indication: DYSLIPIDAEMIA
     Dosage: 5 MILLIGRAM, QD
     Route: 048
     Dates: end: 20191203
  8. NITROPEN [Concomitant]
     Active Substance: NITROGLYCERIN
     Indication: PRODUCT USED FOR UNKNOWN INDICATION
     Route: 048
  9. DENOSUMAB [Concomitant]
     Active Substance: DENOSUMAB
     Indication: HORMONE-REFRACTORY PROSTATE CANCER
     Dosage: UNK
     Route: 042
     Dates: start: 201812
  10. ENALAPRIL MALEATE. [Concomitant]
     Active Substance: ENALAPRIL MALEATE
     Indication: CARDIAC FAILURE CHRONIC
     Dosage: 2.5 MILLIGRAM, QD
     Route: 048
  11. XTANDI [Suspect]
     Active Substance: ENZALUTAMIDE
     Dosage: 160 MILLIGRAM, QD
     Route: 048
     Dates: start: 201809, end: 20191213
  12. CLOPIDOGREL [Suspect]
     Active Substance: CLOPIDOGREL BISULFATE
     Indication: PROPHYLAXIS
     Dosage: 75 MILLIGRAM, QD
     Route: 048
     Dates: end: 20191213
  13. XTANDI [Suspect]
     Active Substance: ENZALUTAMIDE
     Indication: HORMONE-REFRACTORY PROSTATE CANCER
     Dosage: 80 MILLIGRAM, QD
     Route: 048
     Dates: start: 20180901, end: 201809
  14. BAYASPIRIN [Concomitant]
     Active Substance: ASPIRIN
     Indication: PROPHYLAXIS
     Dosage: 100 MILLIGRAM, QD
     Route: 048
  15. SENNOSIDE A [Concomitant]
     Active Substance: SENNOSIDE A
     Indication: PROPHYLAXIS
     Dosage: 24 MILLIGRAM, QD
     Route: 048

REACTIONS (3)
  - Cholelithiasis [Recovered/Resolved]
  - Condition aggravated [Recovered/Resolved]
  - Interstitial lung disease [Recovering/Resolving]

NARRATIVE: CASE EVENT DATE: 20191128
